FAERS Safety Report 6360628-9 (Version None)
Quarter: 2009Q3

REPORT INFORMATION
  Report Type: 
  Country: None (occurrence: None)
  Receive Date: 20090915
  Receipt Date: 20090831
  Transmission Date: 20100115
  Serious: Yes (Death)
  Sender: FDA-Public Use
  Company Number: 029

PATIENT
  Sex: Male

DRUGS (5)
  1. FAZACLO ODT [Suspect]
     Indication: SCHIZOPHRENIA
     Dosage: 350 MG PO DAILY
     Route: 048
     Dates: start: 20051025, end: 20051205
  2. TRAZODONE HCL [Concomitant]
  3. COGENTIN [Concomitant]
  4. TOPAMAX [Concomitant]
  5. PHENERGAN [Concomitant]

REACTIONS (2)
  - NAUSEA [None]
  - VITAL FUNCTIONS ABNORMAL [None]
